FAERS Safety Report 20868609 (Version 5)
Quarter: 2023Q2

REPORT INFORMATION
  Report Type: Spontaneous
  Country: US (occurrence: US)
  Receive Date: 20220524
  Receipt Date: 20230609
  Transmission Date: 20230721
  Serious: Yes (Other)
  Sender: FDA-Public Use
  Company Number: US-PFIZER INC-202200347735

PATIENT
  Age: 81 Year
  Sex: Male
  Weight: 58.51 kg

DRUGS (1)
  1. VYNDAMAX [Suspect]
     Active Substance: TAFAMIDIS
     Indication: Cardiac amyloidosis
     Dosage: 61 MG, DAILY
     Route: 048
     Dates: start: 2020

REACTIONS (3)
  - Pneumonia [Recovering/Resolving]
  - Lung consolidation [Unknown]
  - Hypoacusis [Unknown]
